FAERS Safety Report 23795271 (Version 2)
Quarter: 2024Q3

REPORT INFORMATION
  Report Type: Spontaneous
  Country: JP (occurrence: JP)
  Receive Date: 20240429
  Receipt Date: 20240816
  Transmission Date: 20241017
  Serious: Yes (Hospitalization, Other)
  Sender: PFIZER
  Company Number: JP-PFIZER INC-PV202400053607

PATIENT
  Age: 7 Decade
  Sex: Male

DRUGS (1)
  1. AZULFIDINE EN-TABS [Suspect]
     Active Substance: SULFASALAZINE
     Indication: Palindromic rheumatism
     Dosage: 1000 MG, DAILY
     Route: 048

REACTIONS (2)
  - Serositis [Recovered/Resolved]
  - Off label use [Unknown]
